APPROVED DRUG PRODUCT: CELESTONE
Active Ingredient: BETAMETHASONE
Strength: 0.6MG/5ML
Dosage Form/Route: SYRUP;ORAL
Application: N014215 | Product #002
Applicant: MERCK SHARP AND DOHME CORP
Approved: Approved Prior to Jan 1, 1982 | RLD: No | RS: No | Type: DISCN